FAERS Safety Report 21972582 (Version 1)
Quarter: 2023Q1

REPORT INFORMATION
  Report Type: Spontaneous
  Country: US (occurrence: US)
  Receive Date: 20230209
  Receipt Date: 20230209
  Transmission Date: 20230417
  Serious: Yes (Other)
  Sender: FDA-Public Use
  Company Number: US-MLMSERVICE-20230125-4059740-1

PATIENT
  Age: 60 Year
  Sex: Male

DRUGS (6)
  1. VINCRISTINE SULFATE [Suspect]
     Active Substance: VINCRISTINE SULFATE
     Indication: Ewing^s sarcoma
     Dosage: UNK
  2. DOXORUBICIN HYDROCHLORIDE [Suspect]
     Active Substance: DOXORUBICIN HYDROCHLORIDE
     Indication: Ewing^s sarcoma
     Dosage: UNK
  3. IFOSFAMIDE [Suspect]
     Active Substance: IFOSFAMIDE
     Indication: Ewing^s sarcoma
     Dosage: UNK, CYCLIC (6 CYCLES)
  4. ETOPOSIDE [Suspect]
     Active Substance: ETOPOSIDE
     Indication: Ewing^s sarcoma
     Dosage: UNK, CYCLIC (6 CYCLES)
  5. CYCLOPHOSPHAMIDE [Suspect]
     Active Substance: CYCLOPHOSPHAMIDE
     Indication: Ewing^s sarcoma
     Dosage: UNK
  6. APIXABAN [Concomitant]
     Active Substance: APIXABAN
     Indication: Anticoagulant therapy
     Dosage: UNK

REACTIONS (4)
  - Febrile neutropenia [Unknown]
  - Syncope [Unknown]
  - Fatigue [Unknown]
  - Off label use [Unknown]
